FAERS Safety Report 16410949 (Version 2)
Quarter: 2019Q3

REPORT INFORMATION
  Report Type: Spontaneous
  Country: US (occurrence: US)
  Receive Date: 20190610
  Receipt Date: 20190722
  Transmission Date: 20191004
  Serious: Yes (Hospitalization, Other)
  Sender: FDA-Public Use
  Company Number: US-JNJFOC-20190540144

PATIENT
  Sex: Female
  Weight: 53.57 kg

DRUGS (2)
  1. DURAGESIC [Suspect]
     Active Substance: FENTANYL
     Route: 062
  2. DURAGESIC [Suspect]
     Active Substance: FENTANYL
     Indication: COMPLEX REGIONAL PAIN SYNDROME
     Route: 062

REACTIONS (6)
  - Complex regional pain syndrome [Unknown]
  - Withdrawal syndrome [Unknown]
  - Femur fracture [Unknown]
  - Product packaging issue [Unknown]
  - Osteoporosis [Unknown]
  - Fall [Unknown]
